FAERS Safety Report 19965243 (Version 1)
Quarter: 2021Q4

REPORT INFORMATION
  Report Type: Spontaneous
  Country: GB (occurrence: GB)
  Receive Date: 20211018
  Receipt Date: 20211018
  Transmission Date: 20220303
  Serious: Yes (Other)
  Sender: FDA-Public Use
  Company Number: GB-ABBVIE-21K-167-4115379-00

PATIENT
  Age: 51 Year
  Sex: Male

DRUGS (2)
  1. RITONAVIR [Interacting]
     Active Substance: RITONAVIR
     Indication: HIV infection
     Route: 048
  2. FLUTICASONE [Interacting]
     Active Substance: FLUTICASONE
     Indication: Sinusitis
     Route: 045

REACTIONS (3)
  - Osteonecrosis [Unknown]
  - Cushing^s syndrome [Unknown]
  - Drug interaction [Unknown]
